FAERS Safety Report 25083500 (Version 3)
Quarter: 2025Q2

REPORT INFORMATION
  Report Type: Report from Study
  Country: US (occurrence: US)
  Receive Date: 20250317
  Receipt Date: 20250409
  Transmission Date: 20250717
  Serious: Yes (Other)
  Sender: ROCHE
  Company Number: US-ROCHE-10000232576

PATIENT
  Age: 50 Year
  Sex: Female
  Weight: 78.4 kg

DRUGS (42)
  1. ITOVEBI [Suspect]
     Active Substance: INAVOLISIB
     Indication: Breast cancer metastatic
     Route: 048
  2. ITOVEBI [Suspect]
     Active Substance: INAVOLISIB
     Route: 048
     Dates: start: 20250210, end: 20250303
  3. ITOVEBI [Suspect]
     Active Substance: INAVOLISIB
     Route: 048
     Dates: start: 20241224, end: 20250106
  4. ITOVEBI [Suspect]
     Active Substance: INAVOLISIB
     Route: 048
     Dates: start: 20250116, end: 20250124
  5. ITOVEBI [Suspect]
     Active Substance: INAVOLISIB
     Route: 048
     Dates: start: 202412, end: 20250106
  6. ITOVEBI [Suspect]
     Active Substance: INAVOLISIB
     Route: 048
  7. RIBOCICLIB [Concomitant]
     Active Substance: RIBOCICLIB
     Dosage: TAKE FOR 21 DAYS AND THEN 7 DAYS OFF.
     Route: 048
     Dates: start: 202407
  8. BENAZEPRIL [Concomitant]
     Active Substance: BENAZEPRIL HYDROCHLORIDE
     Indication: Hypertension
     Route: 048
  9. BENAZEPRIL [Concomitant]
     Active Substance: BENAZEPRIL HYDROCHLORIDE
     Route: 048
  10. VITAMIN D3 [Concomitant]
     Active Substance: CHOLECALCIFEROL
     Indication: Vitamin D decreased
     Route: 048
  11. VITAMIN D3 [Concomitant]
     Active Substance: CHOLECALCIFEROL
     Route: 048
  12. LOMOTIL [Concomitant]
     Active Substance: ATROPINE SULFATE\DIPHENOXYLATE HYDROCHLORIDE
     Indication: Diarrhoea
     Dosage: 2.5 DIPHENOXYLATE / .025 MG ATROPINE. TAKES 1 TABLET AS NEEDED FOR DIARRHEA
     Route: 048
     Dates: start: 202412
  13. ENBREL [Concomitant]
     Active Substance: ETANERCEPT
     Indication: Psoriatic arthropathy
     Route: 058
  14. ENBREL [Concomitant]
     Active Substance: ETANERCEPT
     Route: 058
  15. FENOFIBRATE [Concomitant]
     Active Substance: FENOFIBRATE
     Indication: Hyperlipidaemia
     Route: 048
  16. FENOFIBRATE [Concomitant]
     Active Substance: FENOFIBRATE
     Route: 048
  17. FOLIC ACID [Concomitant]
     Active Substance: FOLIC ACID
     Route: 048
  18. FOLIC ACID [Concomitant]
     Active Substance: FOLIC ACID
     Route: 048
  19. FUROSEMIDE [Concomitant]
     Active Substance: FUROSEMIDE
     Indication: Hypertension
     Route: 048
  20. FUROSEMIDE [Concomitant]
     Active Substance: FUROSEMIDE
     Route: 048
  21. HYDROCHLOROTHIAZIDE [Concomitant]
     Active Substance: HYDROCHLOROTHIAZIDE
     Indication: Hypertension
     Route: 048
  22. HYDROCHLOROTHIAZIDE [Concomitant]
     Active Substance: HYDROCHLOROTHIAZIDE
     Route: 048
  23. NORCO [Concomitant]
     Active Substance: ACETAMINOPHEN\HYDROCODONE BITARTRATE
     Dosage: TAKES 1 TABLET AS NEEDED FOR PAIN. 1 TABLET CONTAINS 50 MG HYDROCODONE/ 325 MG ACETAMINOPHEN
     Route: 048
  24. NORCO [Concomitant]
     Active Substance: ACETAMINOPHEN\HYDROCODONE BITARTRATE
     Dosage: TAKES 1 TABLET AS NEEDED FOR PAIN. 1 TABLET CONTAINS 50 MG HYDROCODONE/ 325 MG ACETAMINOPHEN
     Route: 048
  25. LIDOCAINE DIPHENHYDRAMINE ALUMINUM MAGNESIUM SIMETHICONE [Concomitant]
     Indication: Oral pain
     Dosage: TAKE AS  NEEDED 15 ML AS A SWISH AND SPIT AS NEEDED FOR MOUTH SORE OR MOUTH PAIN
     Dates: start: 20241209
  26. LIDOCAINE DIPHENHYDRAMINE ALUMINUM MAGNESIUM SIMETHICONE [Concomitant]
     Indication: Oral pain
     Dosage: TAKE AS  NEEDED 15 ML AS A SWISH AND SPIT AS NEEDED FOR MOUTH SORE OR MOUTH PAIN
     Dates: start: 20241209
  27. LIDOCAINE DIPHENHYDRAMINE ALUMINUM MAGNESIUM SIMETHICONE [Concomitant]
     Indication: Oral pain
     Dosage: TAKE AS  NEEDED 15 ML AS A SWISH AND SPIT AS NEEDED FOR MOUTH SORE OR MOUTH PAIN
     Dates: start: 20241209
  28. LIDOCAINE DIPHENHYDRAMINE ALUMINUM MAGNESIUM SIMETHICONE [Concomitant]
     Indication: Oral pain
     Dosage: TAKE AS  NEEDED 15 ML AS A SWISH AND SPIT AS NEEDED FOR MOUTH SORE OR MOUTH PAIN
     Dates: start: 20241209
  29. LIDOCAINE DIPHENHYDRAMINE ALUMINUM MAGNESIUM SIMETHICONE [Concomitant]
     Indication: Oral pain
     Dosage: TAKE AS  NEEDED 15 ML AS A SWISH AND SPIT AS NEEDED FOR MOUTH SORE OR MOUTH PAIN
     Dates: start: 20241209
  30. IMODIUM [Concomitant]
     Active Substance: LOPERAMIDE HYDROCHLORIDE
     Indication: Diarrhoea
     Dosage: TAKE AS NEEDED FOR DIARRHEA
     Route: 048
  31. IMODIUM [Concomitant]
     Active Substance: LOPERAMIDE HYDROCHLORIDE
     Dosage: TAKE AS NEEDED FOR DIARRHEA
     Route: 048
  32. METHOTREXATE [Concomitant]
     Active Substance: METHOTREXATE
     Indication: Psoriatic arthropathy
     Route: 048
  33. METHOTREXATE [Concomitant]
     Active Substance: METHOTREXATE
     Route: 048
  34. METOPROLOL [Concomitant]
     Active Substance: METOPROLOL
     Indication: Hypertension
     Route: 048
  35. METOPROLOL [Concomitant]
     Active Substance: METOPROLOL
     Route: 048
  36. ZOFRAN [Concomitant]
     Active Substance: ONDANSETRON HYDROCHLORIDE
     Indication: Nausea
     Dosage: TAKES AS NEEDED FOR NAUSEA AND VOMITTING
     Route: 048
  37. ZOFRAN [Concomitant]
     Active Substance: ONDANSETRON HYDROCHLORIDE
     Indication: Vomiting
     Dosage: TAKES AS NEEDED FOR NAUSEA AND VOMITTING
     Route: 048
  38. COMPAZINE [Concomitant]
     Active Substance: PROCHLORPERAZINE MALEATE
     Indication: Nausea
     Dosage: TAKE AS NEEDED FOR NAUSEA
     Route: 048
  39. COMPAZINE [Concomitant]
     Active Substance: PROCHLORPERAZINE MALEATE
     Dosage: TAKE AS NEEDED FOR NAUSEA
     Route: 048
  40. TRAMADOL [Concomitant]
     Active Substance: TRAMADOL
     Indication: Pain
     Route: 048
  41. TRAMADOL [Concomitant]
     Active Substance: TRAMADOL
     Route: 048
  42. LETROZOLE [Concomitant]
     Active Substance: LETROZOLE
     Indication: Breast cancer metastatic
     Route: 048
     Dates: start: 202407

REACTIONS (5)
  - Acute kidney injury [Unknown]
  - Hyperglycaemia [Recovered/Resolved]
  - Urinary tract infection [Recovered/Resolved]
  - Blood creatinine abnormal [Unknown]
  - Nausea [Recovering/Resolving]

NARRATIVE: CASE EVENT DATE: 20250106
